FAERS Safety Report 14176869 (Version 2)
Quarter: 2018Q1

REPORT INFORMATION
  Report Type: Spontaneous
  Country: DK (occurrence: DK)
  Receive Date: 20171110
  Receipt Date: 20180323
  Transmission Date: 20180508
  Serious: Yes (Other)
  Sender: FDA-Public Use
  Company Number: DK-ROCHE-2016868

PATIENT
  Age: 53 Year
  Sex: Male

DRUGS (2)
  1. METEX (METHOTREXATE) [Suspect]
     Active Substance: METHOTREXATE
     Indication: RHEUMATOID ARTHRITIS
     Dosage: STRENGTH: 50 MG/ML
     Route: 030
     Dates: start: 20130601, end: 20160901
  2. ROACTEMRA [Suspect]
     Active Substance: TOCILIZUMAB
     Indication: RHEUMATOID ARTHRITIS
     Route: 058
     Dates: start: 20130601, end: 20160901

REACTIONS (7)
  - Actinic keratosis [Unknown]
  - Rhinoplasty [Unknown]
  - Wound [Unknown]
  - Seborrhoeic keratosis [Unknown]
  - Nasal necrosis [Unknown]
  - Impaired healing [Unknown]
  - Squamous cell carcinoma of skin [Recovered/Resolved]

NARRATIVE: CASE EVENT DATE: 20150921
